FAERS Safety Report 17010460 (Version 1)
Quarter: 2019Q4

REPORT INFORMATION
  Report Type: Spontaneous
  Country: US (occurrence: US)
  Receive Date: 20191107
  Receipt Date: 20191107
  Transmission Date: 20200122
  Serious: Yes (Death)
  Sender: FDA-Public Use
  Company Number: None

PATIENT
  Sex: Male

DRUGS (1)
  1. CYANOCOBALAMIN 1000MCG/ML INJ 1 ML VI [Suspect]
     Active Substance: CYANOCOBALAMIN

REACTIONS (1)
  - Death [None]
